FAERS Safety Report 13422869 (Version 2)
Quarter: 2017Q2

REPORT INFORMATION
  Report Type: Report from Study
  Country: US (occurrence: US)
  Receive Date: 20170410
  Receipt Date: 20170414
  Transmission Date: 20170830
  Serious: Yes (Hospitalization, Other)
  Sender: FDA-Public Use
  Company Number: US-TEVA-756507USA

PATIENT
  Age: 33 Year
  Sex: Female

DRUGS (2)
  1. KLONOPIN [Interacting]
     Active Substance: CLONAZEPAM
     Route: 048
  2. COPAXONE [Suspect]
     Active Substance: GLATIRAMER ACETATE
     Indication: MULTIPLE SCLEROSIS
     Route: 058
     Dates: start: 20161216

REACTIONS (5)
  - Multiple sclerosis relapse [Unknown]
  - Chest pain [Unknown]
  - Heart rate increased [Unknown]
  - Palpitations [Unknown]
  - Drug interaction [Unknown]

NARRATIVE: CASE EVENT DATE: 2017
